FAERS Safety Report 8049126-4 (Version None)
Quarter: 2011Q4

REPORT INFORMATION
  Report Type: 
  Country: None (occurrence: None)
  Receive Date: 20111209
  Receipt Date: 20110809
  Transmission Date: 20120403
  Serious: No
  Sender: FDA-Public Use
  Company Number: TH-2011-00301

PATIENT
  Age: 47 Year

DRUGS (6)
  1. EGRIFTA [Suspect]
     Indication: PRODUCT USED FOR UNKNOWN INDICATION
     Dates: start: 20110801
  2. KALETRA [Concomitant]
  3. CYMBALTA [Concomitant]
  4. EMTRIVA [Concomitant]
  5. ISENTRESS (RALREGRAVIR POTASSIUM) [Concomitant]
  6. LISINOPRIL [Concomitant]

REACTIONS (1)
  - SYNCOPE [None]
